FAERS Safety Report 12755437 (Version 1)
Quarter: 2016Q3

REPORT INFORMATION
  Report Type: Spontaneous
  Country: US (occurrence: US)
  Receive Date: 20160916
  Receipt Date: 20160916
  Transmission Date: 20161109
  Serious: Yes (Other)
  Sender: FDA-Public Use
  Company Number: US-JNJFOC-20160903686

PATIENT
  Age: 31 Year
  Sex: Male
  Weight: 65.77 kg

DRUGS (1)
  1. LISTERINE TOTAL CARE STAIN REMOVER ANTI CAVITY FRESHMINT [Suspect]
     Active Substance: SODIUM FLUORIDE
     Indication: DENTAL DISORDER PROPHYLAXIS
     Dosage: ABOUT AN OUNCE, 2X DAILY AND SWISH FOR 60 SEC OR LESS
     Route: 048
     Dates: start: 2015

REACTIONS (1)
  - Chemical burn of gastrointestinal tract [Not Recovered/Not Resolved]
